FAERS Safety Report 6810383-0 (Version None)
Quarter: 2010Q2

REPORT INFORMATION
  Report Type: 
  Country: None (occurrence: None)
  Receive Date: 20100630
  Receipt Date: 20100616
  Transmission Date: 20101027
  Serious: Yes (Other)
  Sender: FDA-Public Use
  Company Number: PHHY2010JP39623

PATIENT
  Age: 68 Year
  Sex: Male

DRUGS (5)
  1. ZOMETA [Suspect]
     Indication: METASTASES TO BONE
     Route: 041
  2. DEXAMETHASONE [Suspect]
     Indication: PROSTATE CANCER
     Route: 065
  3. DIETHYLSTILBESTROL DIPROPIONATE [Concomitant]
     Indication: PROSTATE CANCER
  4. ESTRAMUSTINE PHOSPHATE SODIUM [Concomitant]
     Indication: PROSTATE CANCER
     Route: 048
  5. DOCETAXEL [Concomitant]
     Indication: PROSTATE CANCER
     Dosage: UNK
     Route: 041
     Dates: start: 20081101

REACTIONS (5)
  - BLOOD AMYLASE INCREASED [None]
  - METASTASES TO LUNG [None]
  - NEUTROPENIA [None]
  - PLEURAL EFFUSION [None]
  - PROSTATIC SPECIFIC ANTIGEN INCREASED [None]
